FAERS Safety Report 4738142-3 (Version None)
Quarter: 2005Q3

REPORT INFORMATION
  Report Type: 
  Country: None (occurrence: None)
  Receive Date: 20050802
  Receipt Date: 20050719
  Transmission Date: 20060218
  Serious: Yes (Death)
  Sender: FDA-Public Use
  Company Number: B0388170A

PATIENT
  Age: 57 Year
  Sex: Male

DRUGS (4)
  1. WELLBUTRIN [Suspect]
  2. VENLAFAXINE HCL [Suspect]
  3. MOCLOBEMIDE (FORMULATION UNKNOWN) (MOCLOBEMIDE) [Suspect]
  4. TRIMIPRAMINE MALEATE [Suspect]

REACTIONS (6)
  - DIARRHOEA [None]
  - DRUG LEVEL INCREASED [None]
  - DYSPNOEA [None]
  - HYPERHIDROSIS [None]
  - OVERDOSE [None]
  - SEROTONIN SYNDROME [None]
